FAERS Safety Report 7171407-7 (Version None)
Quarter: 2010Q4

REPORT INFORMATION
  Report Type: 
  Country: None (occurrence: None)
  Receive Date: 20101217
  Receipt Date: 20101210
  Transmission Date: 20110411
  Serious: Yes (Other)
  Sender: FDA-Public Use
  Company Number: DE-CEPHALON-2010005642

PATIENT
  Sex: Female
  Weight: 78 kg

DRUGS (3)
  1. TREANDA [Suspect]
     Indication: BREAST CANCER METASTATIC
     Route: 042
     Dates: start: 20090205, end: 20090814
  2. PACLITAXEL [Suspect]
     Indication: BREAST CANCER METASTATIC
     Route: 042
     Dates: start: 20090205, end: 20090814
  3. LEVOTHYROXINE SODIUM [Concomitant]

REACTIONS (1)
  - DENTAL CARIES [None]
